FAERS Safety Report 20795715 (Version 1)
Quarter: 2022Q2

REPORT INFORMATION
  Report Type: Spontaneous
  Country: RU (occurrence: RU)
  Receive Date: 20220506
  Receipt Date: 20220506
  Transmission Date: 20220721
  Serious: Yes (Death)
  Sender: FDA-Public Use
  Company Number: RU-AstraZeneca-2022A166995

PATIENT
  Sex: Female
  Weight: 40 kg

DRUGS (1)
  1. TRASTUZUMAB DERUXTECAN [Suspect]
     Active Substance: TRASTUZUMAB DERUXTECAN
     Indication: Breast cancer
     Dosage: 200 MG, ONCE EVERY 3 WK
     Route: 041
     Dates: start: 20220207, end: 20220329

REACTIONS (3)
  - Malignant neoplasm progression [Fatal]
  - Brain neoplasm [Fatal]
  - Pleural effusion [Fatal]
